FAERS Safety Report 4346432-1 (Version None)
Quarter: 2004Q1

REPORT INFORMATION
  Report Type: 
  Country: None (occurrence: None)
  Receive Date: 20040325
  Receipt Date: 20040112
  Transmission Date: 20041129
  Serious: No
  Sender: FDA-Public Use
  Company Number: USA040156360

PATIENT
  Age: 77 Year
  Sex: Female

DRUGS (1)
  1. FORTEO [Suspect]
     Dates: start: 20031220

REACTIONS (6)
  - ASTHENIA [None]
  - BRONCHITIS VIRAL [None]
  - DIARRHOEA [None]
  - FEELING ABNORMAL [None]
  - INSOMNIA [None]
  - VIRAL INFECTION [None]
